FAERS Safety Report 5674733-3 (Version None)
Quarter: 2008Q1

REPORT INFORMATION
  Report Type: 
  Country: None (occurrence: None)
  Receive Date: 20080320
  Receipt Date: 20080312
  Transmission Date: 20080703
  Serious: Yes (Hospitalization)
  Sender: FDA-Public Use
  Company Number: GB-ROCHE-553501

PATIENT
  Age: 40 Year
  Sex: Female
  Weight: 95.3 kg

DRUGS (4)
  1. ORLISTAT [Suspect]
     Indication: OBESITY
     Route: 048
     Dates: start: 20070710
  2. METFORMIN HCL [Concomitant]
     Route: 048
  3. ROSIGLITAZONE [Concomitant]
     Route: 048
  4. SIMVASTATIN [Concomitant]
     Route: 048

REACTIONS (1)
  - GLOMERULONEPHRITIS [None]
